FAERS Safety Report 10059599 (Version 2)
Quarter: 2014Q2

REPORT INFORMATION
  Report Type: Report from Study
  Country: IL (occurrence: IL)
  Receive Date: 20140404
  Receipt Date: 20140404
  Transmission Date: 20141212
  Serious: Yes (Other)
  Sender: FDA-Public Use
  Company Number: IL-ABBVIE-14P-082-1217456-00

PATIENT
  Sex: Male

DRUGS (1)
  1. HUMIRA [Suspect]
     Indication: CROHN^S DISEASE
     Route: 058
     Dates: start: 20131014

REACTIONS (8)
  - Lymphoma [Unknown]
  - Hepatic enzyme increased [Unknown]
  - Lymphocyte morphology abnormal [Unknown]
  - C-reactive protein abnormal [Unknown]
  - Influenza [Recovered/Resolved]
  - Bronchitis [Recovered/Resolved]
  - White blood cell count increased [Unknown]
  - Lymphadenopathy [Unknown]
